FAERS Safety Report 18482887 (Version 2)
Quarter: 2020Q4

REPORT INFORMATION
  Report Type: Spontaneous
  Country: US (occurrence: US)
  Receive Date: 20201110
  Receipt Date: 20201112
  Transmission Date: 20210114
  Serious: No
  Sender: FDA-Public Use
  Company Number: US-UNITED THERAPEUTICS-UNT-2017-018177

PATIENT
  Age: 72 Year
  Sex: Male
  Weight: 112.02 kg

DRUGS (10)
  1. TYVASO [Suspect]
     Active Substance: TREPROSTINIL
     Dosage: UNK
  2. OFEV [Concomitant]
     Active Substance: NINTEDANIB
     Indication: PULMONARY ARTERIAL HYPERTENSION
     Dosage: UNK
     Route: 048
  3. TYVASO [Suspect]
     Active Substance: TREPROSTINIL
     Dosage: UNK
  4. TYVASO [Suspect]
     Active Substance: TREPROSTINIL
     Dosage: 18-54 ?G, QID
  5. OFEV [Concomitant]
     Active Substance: NINTEDANIB
     Dosage: UNK
     Route: 048
  6. OFEV [Concomitant]
     Active Substance: NINTEDANIB
     Dosage: UNK
     Route: 048
  7. TYVASO [Suspect]
     Active Substance: TREPROSTINIL
     Dosage: UNK
  8. TYVASO [Suspect]
     Active Substance: TREPROSTINIL
     Dosage: UNK
  9. TYVASO [Suspect]
     Active Substance: TREPROSTINIL
     Indication: PULMONARY ARTERIAL HYPERTENSION
     Dosage: UNK
     Dates: start: 20171211
  10. OFEV [Concomitant]
     Active Substance: NINTEDANIB
     Indication: IDIOPATHIC PULMONARY FIBROSIS
     Dosage: 150 MG, BID (150 MG,1 IN 0.5 DAY)
     Route: 048
     Dates: start: 20170914

REACTIONS (7)
  - Cough [Unknown]
  - Walking distance test abnormal [Unknown]
  - Epistaxis [Unknown]
  - Feeling abnormal [Unknown]
  - Nasal dryness [Unknown]
  - Dyspnoea exertional [Unknown]
  - Productive cough [Unknown]

NARRATIVE: CASE EVENT DATE: 201712
